FAERS Safety Report 14547589 (Version 1)
Quarter: 2018Q1

REPORT INFORMATION
  Report Type: Report from Study
  Country: None (occurrence: US)
  Receive Date: 20180219
  Receipt Date: 20180219
  Transmission Date: 20180509
  Serious: Yes (Hospitalization, Other)
  Sender: FDA-Public Use
  Company Number: US-ABBVIE-18K-163-2259343-00

PATIENT
  Age: 40 Year
  Sex: Female

DRUGS (1)
  1. HUMIRA [Suspect]
     Active Substance: ADALIMUMAB
     Indication: CROHN^S DISEASE
     Route: 058

REACTIONS (8)
  - Hernia [Recovered/Resolved]
  - Weight decreased [Not Recovered/Not Resolved]
  - Uterine leiomyoma [Recovered/Resolved]
  - Hypophagia [Unknown]
  - Abdominal pain upper [Unknown]
  - Ovarian cyst [Recovered/Resolved]
  - Intestinal operation [Recovered/Resolved]
  - Malaise [Recovering/Resolving]

NARRATIVE: CASE EVENT DATE: 201801
